FAERS Safety Report 15233725 (Version 2)
Quarter: 2020Q3

REPORT INFORMATION
  Report Type: Spontaneous
  Country: US (occurrence: US)
  Receive Date: 20180802
  Receipt Date: 20200710
  Transmission Date: 20201102
  Serious: No
  Sender: FDA-Public Use
  Company Number: US-ACTELION-A-NJ2018-176700

PATIENT
  Sex: Female
  Weight: 77.1 kg

DRUGS (8)
  1. UPTRAVI [Suspect]
     Active Substance: SELEXIPAG
     Dosage: UNK
     Route: 048
     Dates: start: 20160225, end: 20190721
  2. ADCIRCA [Concomitant]
     Active Substance: TADALAFIL
  3. METFORMIN [Concomitant]
     Active Substance: METFORMIN HYDROCHLORIDE
  4. UPTRAVI [Suspect]
     Active Substance: SELEXIPAG
     Indication: PULMONARY ARTERIAL HYPERTENSION
     Dosage: 400 MCG, BID
     Route: 048
  5. WARFARIN [Concomitant]
     Active Substance: WARFARIN
  6. DIGOXIN. [Concomitant]
     Active Substance: DIGOXIN
  7. OPSUMIT [Suspect]
     Active Substance: MACITENTAN
     Indication: PULMONARY ARTERIAL HYPERTENSION
     Dosage: 10 MG, QD
     Route: 048
  8. BUMEX [Concomitant]
     Active Substance: BUMETANIDE

REACTIONS (2)
  - Extra dose administered [Unknown]
  - Anxiety [Unknown]
